FAERS Safety Report 13775416 (Version 2)
Quarter: 2018Q3

REPORT INFORMATION
  Report Type: Report from Study
  Country: HU (occurrence: HU)
  Receive Date: 20170720
  Receipt Date: 20180702
  Transmission Date: 20181010
  Serious: Yes (Hospitalization)
  Sender: FDA-Public Use
  Company Number: PHHY2017HU020996

PATIENT
  Age: 61 Year
  Sex: Female
  Weight: 70 kg

DRUGS (5)
  1. METHOTREXATE. [Concomitant]
     Active Substance: METHOTREXATE
     Indication: RHEUMATOID ARTHRITIS
     Dosage: 20 MG
     Route: 065
     Dates: start: 20140527
  2. FOLIC ACID. [Concomitant]
     Active Substance: FOLIC ACID
     Indication: RHEUMATOID ARTHRITIS
     Dosage: 6 MG
     Route: 065
     Dates: start: 20141017
  3. GP2015 [Suspect]
     Active Substance: ETANERCEPT-SZZS
     Dosage: UNK
     Route: 058
     Dates: start: 20161026, end: 20170202
  4. GP2015 [Suspect]
     Active Substance: ETANERCEPT-SZZS
     Indication: RHEUMATOID ARTHRITIS
     Dosage: UNK
     Route: 058
     Dates: start: 20160511, end: 20161019
  5. NORIFAZ TRIO [Concomitant]
     Active Substance: CALCIUM CARBONATE\CHOLECALCIFEROL\RISEDRONATE SODIUM
     Indication: OSTEOPOROSIS
     Dosage: 35 MG
     Route: 065
     Dates: start: 20140527

REACTIONS (4)
  - Nasopharyngitis [None]
  - Pneumonia [Recovered/Resolved]
  - C-reactive protein increased [None]
  - White blood cell count increased [None]

NARRATIVE: CASE EVENT DATE: 20170202
